FAERS Safety Report 5078686-0 (Version None)
Quarter: 2006Q3

REPORT INFORMATION
  Report Type: 
  Country: None (occurrence: None)
  Receive Date: 20060720
  Receipt Date: 20060620
  Transmission Date: 20061208
  Serious: Yes (Other)
  Sender: FDA-Public Use
  Company Number: HQWYE334621JUN06

PATIENT
  Age: 65 Year
  Sex: Female
  Weight: 50.39 kg

DRUGS (3)
  1. ADVIL PM [Suspect]
     Indication: INSOMNIA
     Dosage: 1 CAPSULE AS NEEDED IN EVENING, ORAL
     Route: 048
     Dates: start: 20060608
  2. ADVIL PM [Suspect]
     Indication: PAIN IN EXTREMITY
     Dosage: 1 CAPSULE AS NEEDED IN EVENING, ORAL
     Route: 048
     Dates: start: 20060608
  3. UNSPECIFIED INSULIN (UNSPECIFIED INSULIN) [Concomitant]

REACTIONS (1)
  - BLOOD GLUCOSE INCREASED [None]
